FAERS Safety Report 14347708 (Version 1)
Quarter: 2018Q1

REPORT INFORMATION
  Report Type: Spontaneous
  Country: US (occurrence: US)
  Receive Date: 20180102
  Receipt Date: 20180102
  Transmission Date: 20180509
  Serious: Yes (Hospitalization)
  Sender: FDA-Public Use
  Company Number: None

PATIENT
  Age: 81 Year
  Sex: Male

DRUGS (14)
  1. LORATADINE. [Concomitant]
     Active Substance: LORATADINE
  2. ATROVASTATIN [Concomitant]
     Active Substance: ATORVASTATIN CALCIUM
  3. GLIPIZIDE. [Concomitant]
     Active Substance: GLIPIZIDE
  4. VITAMIN E [Concomitant]
     Active Substance: .ALPHA.-TOCOPHEROL
  5. VITAMIN B12 [Concomitant]
     Active Substance: CYANOCOBALAMIN
  6. MULTIVITAMIN [Concomitant]
     Active Substance: VITAMINS
  7. NAPROXEN. [Concomitant]
     Active Substance: NAPROXEN
  8. TAMSULOSIN [Concomitant]
     Active Substance: TAMSULOSIN
  9. COQ10 [Concomitant]
     Active Substance: UBIDECARENONE
  10. ZYTIGA [Suspect]
     Active Substance: ABIRATERONE ACETATE
     Indication: PROSTATE CANCER
     Route: 048
     Dates: start: 20130920
  11. CETIRIZINE [Concomitant]
     Active Substance: CETIRIZINE HYDROCHLORIDE
  12. FLOMAX [Concomitant]
     Active Substance: TAMSULOSIN HYDROCHLORIDE
  13. NIACIN ER [Concomitant]
     Active Substance: NIACIN
  14. PREDNISONE. [Concomitant]
     Active Substance: PREDNISONE

REACTIONS (3)
  - Hospitalisation [None]
  - Joint arthroplasty [None]
  - Therapy cessation [None]

NARRATIVE: CASE EVENT DATE: 20171219
